FAERS Safety Report 6650921-4 (Version None)
Quarter: 2010Q1

REPORT INFORMATION
  Report Type: 
  Country: None (occurrence: None)
  Receive Date: 20100325
  Receipt Date: 20100311
  Transmission Date: 20100710
  Serious: No
  Sender: FDA-Public Use
  Company Number: US-BIOGENIDEC-2010BI008202

PATIENT
  Age: 55 Year
  Sex: Female

DRUGS (3)
  1. TYSABRI [Suspect]
     Indication: MULTIPLE SCLEROSIS
     Route: 042
     Dates: start: 20090924
  2. TYLENOL-500 [Concomitant]
     Indication: PROPHYLAXIS
  3. BENADRYL [Concomitant]
     Indication: PROPHYLAXIS
     Dates: start: 20090923

REACTIONS (1)
  - DRUG SPECIFIC ANTIBODY PRESENT [None]
